FAERS Safety Report 4543483-9 (Version None)
Quarter: 2005Q1

REPORT INFORMATION
  Report Type: 
  Country: None (occurrence: None)
  Receive Date: 20050103
  Receipt Date: 20041223
  Transmission Date: 20050727
  Serious: Yes (Other)
  Sender: FDA-Public Use
  Company Number: 200422257GDDC

PATIENT
  Age: 41 Year
  Sex: Male

DRUGS (4)
  1. NICORETTE [Suspect]
     Dosage: 2MG PER DAY
     Route: 002
     Dates: start: 19840101, end: 19940101
  2. NICORETTE [Suspect]
     Dosage: 2MG PER DAY
     Route: 002
     Dates: start: 20040101
  3. INSULIN [Concomitant]
  4. ANTIHYPERTENSIVES [Concomitant]

REACTIONS (2)
  - DEPENDENCE [None]
  - HYPERTENSION [None]
